FAERS Safety Report 12867074 (Version 1)
Quarter: 2016Q4

REPORT INFORMATION
  Report Type: Spontaneous
  Country: US (occurrence: US)
  Receive Date: 20161020
  Receipt Date: 20161020
  Transmission Date: 20170207
  Serious: No
  Sender: FDA-Public Use
  Company Number: US-JAZZ-2016-US-014590

PATIENT
  Sex: Female

DRUGS (19)
  1. XYREM [Suspect]
     Active Substance: SODIUM OXYBATE
     Dosage: 3.75 G, BID
     Route: 048
     Dates: start: 201106, end: 201310
  2. PREVACID [Concomitant]
     Active Substance: LANSOPRAZOLE
  3. XYREM [Suspect]
     Active Substance: SODIUM OXYBATE
     Indication: NARCOLEPSY
     Dosage: 2.25 G, BID
     Route: 048
     Dates: start: 200911, end: 200911
  4. XYREM [Suspect]
     Active Substance: SODIUM OXYBATE
     Dosage: 3.25 G, BID
     Route: 048
     Dates: start: 201104, end: 201106
  5. IBUPROFEN. [Concomitant]
     Active Substance: IBUPROFEN
  6. INDOMETHACIN. [Concomitant]
     Active Substance: INDOMETHACIN
  7. NORTRIPTYLINE HCL [Concomitant]
     Active Substance: NORTRIPTYLINE HYDROCHLORIDE
  8. PREVACID [Concomitant]
     Active Substance: LANSOPRAZOLE
  9. XYREM [Suspect]
     Active Substance: SODIUM OXYBATE
     Dosage: 4 G, BID
     Route: 048
     Dates: start: 201310
  10. LYRICA [Concomitant]
     Active Substance: PREGABALIN
  11. PANTOPRAZOLE SODIUM. [Concomitant]
     Active Substance: PANTOPRAZOLE SODIUM
  12. XYREM [Suspect]
     Active Substance: SODIUM OXYBATE
     Dosage: DOSE ADJUSTMENTS
     Route: 048
     Dates: start: 200911, end: 201009
  13. NUVIGIL [Concomitant]
     Active Substance: ARMODAFINIL
  14. XYREM [Suspect]
     Active Substance: SODIUM OXYBATE
     Dosage: 4 G, BID
     Route: 048
     Dates: start: 201009, end: 2010
  15. RESTASIS [Concomitant]
     Active Substance: CYCLOSPORINE
  16. ABILIFY [Concomitant]
     Active Substance: ARIPIPRAZOLE
  17. AMBIEN [Concomitant]
     Active Substance: ZOLPIDEM TARTRATE
  18. CYMBALTA [Concomitant]
     Active Substance: DULOXETINE HYDROCHLORIDE
  19. ZONEGRAN [Concomitant]
     Active Substance: ZONISAMIDE

REACTIONS (1)
  - Middle insomnia [Unknown]
